FAERS Safety Report 13798068 (Version 3)
Quarter: 2017Q3

REPORT INFORMATION
  Report Type: Spontaneous
  Country: US (occurrence: US)
  Receive Date: 20170727
  Receipt Date: 20170818
  Transmission Date: 20171127
  Serious: No
  Sender: FDA-Public Use
  Company Number: US-PFIZER INC-2017325992

PATIENT
  Age: 73 Year
  Sex: Female
  Weight: 137 kg

DRUGS (14)
  1. SPIRONOLACTONE. [Concomitant]
     Active Substance: SPIRONOLACTONE
     Indication: RENAL DISORDER
     Dosage: 25 MG, 1X/DAY IN THE MORNING
  2. ALPRAZOLAM. [Suspect]
     Active Substance: ALPRAZOLAM
     Indication: ANXIETY
     Dosage: 1 MG, 1X/DAY
     Route: 048
  3. SLO-NIACIN [Concomitant]
     Active Substance: NIACIN
     Indication: BLOOD CHOLESTEROL ABNORMAL
     Dosage: 500 MG, 1X/DAY
  4. ALPRAZOLAM. [Suspect]
     Active Substance: ALPRAZOLAM
     Dosage: 1 MG, 4X/DAY
     Route: 048
  5. LOSARTAN POTASSIUM. [Concomitant]
     Active Substance: LOSARTAN POTASSIUM
     Indication: BLOOD PRESSURE ABNORMAL
     Dosage: 50 MG, 1X/DAY AT NIGHT
  6. METOPROLOL SUCCINATE. [Concomitant]
     Active Substance: METOPROLOL SUCCINATE
     Dosage: 12 MG, 1X/DAY
  7. RANEXA [Concomitant]
     Active Substance: RANOLAZINE
     Dosage: 500 MG, 2X/DAY MORNING AND NIGHT
     Route: 048
  8. RANITIDINE. [Concomitant]
     Active Substance: RANITIDINE
     Dosage: 150 MG, UNK
  9. BUMEX [Concomitant]
     Active Substance: BUMETANIDE
     Indication: CARDIAC FAILURE CONGESTIVE
     Dosage: 2 MG, 1X/DAY
  10. SPIRONOLACTONE. [Concomitant]
     Active Substance: SPIRONOLACTONE
     Indication: MICTURITION DISORDER
  11. SYNTHROID [Concomitant]
     Active Substance: LEVOTHYROXINE SODIUM
     Indication: THYROID DISORDER
     Dosage: 125 UG, 1X/DAY
  12. POTASSIUM CHLORIDE. [Concomitant]
     Active Substance: POTASSIUM CHLORIDE
     Dosage: UNK, 4X/DAY
  13. L-ARGININE /00126101/ [Concomitant]
     Active Substance: ARGININE
     Indication: CARDIOVASCULAR INSUFFICIENCY
     Dosage: 850 MG, 1X/DAY
  14. TURMERIC /01079602/ [Concomitant]
     Active Substance: HERBALS\TURMERIC
     Dosage: 720 MG, 1X/DAY AT NIGHT

REACTIONS (4)
  - Anxiety [Unknown]
  - Condition aggravated [Unknown]
  - Pruritus [Not Recovered/Not Resolved]
  - Body height decreased [Unknown]

NARRATIVE: CASE EVENT DATE: 201706
